FAERS Safety Report 7354367-5 (Version None)
Quarter: 2011Q1

REPORT INFORMATION
  Report Type: 
  Country: None (occurrence: None)
  Receive Date: 20110316
  Receipt Date: 20110304
  Transmission Date: 20110831
  Serious: Yes (Other)
  Sender: FDA-Public Use
  Company Number: US-JNJFOC-20110200320

PATIENT
  Sex: Female

DRUGS (2)
  1. STELARA [Suspect]
     Indication: PSORIASIS
     Dosage: TOTAL 3 DOSES
     Route: 058
  2. ACETYLSALICYLIC ACID SRT [Concomitant]

REACTIONS (1)
  - BREAST CANCER [None]
